FAERS Safety Report 19162969 (Version 1)
Quarter: 2021Q2

REPORT INFORMATION
  Report Type: Spontaneous
  Country: US (occurrence: FR)
  Receive Date: 20210421
  Receipt Date: 20210421
  Transmission Date: 20210717
  Serious: No
  Sender: FDA-Public Use
  Company Number: US-SA-2021SA094465

PATIENT
  Age: 46 Year
  Sex: Female

DRUGS (3)
  1. AUBAGIO [Suspect]
     Active Substance: TERIFLUNOMIDE
     Indication: MULTIPLE SCLEROSIS
  2. INEXIUM [ESOMEPRAZOLE SODIUM] [Concomitant]
     Active Substance: ESOMEPRAZOLE SODIUM
  3. DOLIPRANE [Suspect]
     Active Substance: ACETAMINOPHEN

REACTIONS (11)
  - Arthralgia [Unknown]
  - Fungal infection [Unknown]
  - Balance disorder [Unknown]
  - Influenza like illness [Unknown]
  - Skin haemorrhage [Unknown]
  - Myalgia [Unknown]
  - Fatigue [Unknown]
  - Dizziness [Unknown]
  - Pain in extremity [Unknown]
  - Condition aggravated [Unknown]
  - Drug ineffective [Unknown]
